FAERS Safety Report 20387801 (Version 1)
Quarter: 2022Q1

REPORT INFORMATION
  Report Type: Spontaneous
  Country: CA (occurrence: CA)
  Receive Date: 20220127
  Receipt Date: 20220127
  Transmission Date: 20220423
  Serious: Yes (Other)
  Sender: FDA-Public Use
  Company Number: CA-009507513-2201CAN004894

PATIENT
  Age: 30 Year
  Sex: Female
  Weight: 63 kg

DRUGS (8)
  1. TEMODAL [Suspect]
     Active Substance: TEMOZOLOMIDE
     Indication: Neoplasm malignant
     Dosage: 150.0 MG/M2, 1 EVERY 1 DAYS
     Route: 048
  2. CANNABIDIOL\HERBALS [Suspect]
     Active Substance: CANNABIDIOL\HERBALS
     Indication: Neoplasm malignant
     Dosage: 200 MILLIGRAM, 1 EVERY 1 DAYS
     Route: 048
  3. .DELTA.9-TETRAHYDROCANNABINOL\CANNABIDIOL\HERBALS [Suspect]
     Active Substance: .DELTA.9-TETRAHYDROCANNABINOL\CANNABIDIOL\HERBALS
     Indication: Neoplasm malignant
     Dosage: 20.0 MILLIGRAM, 1 EVERY 1 DAYS
  4. LUPRON [Concomitant]
     Active Substance: LEUPROLIDE ACETATE
     Dosage: UNK
  5. PROCHLORPERAZINE [Concomitant]
     Active Substance: PROCHLORPERAZINE
     Dosage: UNK
  6. RABEPRAZOLE [Concomitant]
     Active Substance: RABEPRAZOLE
     Dosage: UNK
  7. SENNOSIDES [Concomitant]
     Active Substance: SENNOSIDES
     Dosage: UNK
  8. ZOFRAN [Concomitant]
     Active Substance: ONDANSETRON HYDROCHLORIDE
     Dosage: UNK

REACTIONS (3)
  - Abdominal pain [Unknown]
  - Cholelithiasis [Unknown]
  - Hepatic enzyme increased [Unknown]
